FAERS Safety Report 7573261-8 (Version None)
Quarter: 2011Q2

REPORT INFORMATION
  Report Type: 
  Country: None (occurrence: None)
  Receive Date: 20110627
  Receipt Date: 20110614
  Transmission Date: 20111010
  Serious: Yes (Other)
  Sender: FDA-Public Use
  Company Number: PHHY2011MX53961

PATIENT
  Sex: Female

DRUGS (3)
  1. PREXIGE [Concomitant]
  2. ZOLEDRONIC ACID [Suspect]
     Indication: OSTEOPOROSIS
     Dosage: 5MG/100 ML
     Route: 042
     Dates: start: 20110610
  3. TYLENOL-500 [Concomitant]

REACTIONS (9)
  - LOWER LIMB FRACTURE [None]
  - RIB FRACTURE [None]
  - DYSPNOEA [None]
  - GAIT DISTURBANCE [None]
  - UPPER LIMB FRACTURE [None]
  - CHEST PAIN [None]
  - INFLUENZA [None]
  - MUSCULOSKELETAL DISCOMFORT [None]
  - PAIN [None]
